FAERS Safety Report 14295494 (Version 1)
Quarter: 2017Q4

REPORT INFORMATION
  Report Type: Spontaneous
  Country: US (occurrence: US)
  Receive Date: 20171215
  Receipt Date: 20171215
  Transmission Date: 20180321
  Serious: No
  Sender: FDA-Public Use
  Company Number: None

PATIENT
  Age: 1 Year
  Sex: Female
  Weight: 12.2 kg

DRUGS (7)
  1. METHOTREXATE. [Suspect]
     Active Substance: METHOTREXATE
     Dates: end: 20171130
  2. MITOXANTRONE HYDROCHLORIDE. [Suspect]
     Active Substance: MITOXANTRONE HYDROCHLORIDE
     Dates: end: 20171117
  3. CYTARABINE. [Suspect]
     Active Substance: CYTARABINE
     Route: 037
     Dates: end: 20171130
  4. DEXAMETHASONE. [Suspect]
     Active Substance: DEXAMETHASONE
     Dates: end: 20171204
  5. HYDROCORTISONE. [Suspect]
     Active Substance: HYDROCORTISONE
     Route: 037
     Dates: end: 20171130
  6. ONCASPAR [Suspect]
     Active Substance: PEGASPARGASE
     Dates: end: 20171202
  7. VINCRISTINE [Suspect]
     Active Substance: VINCRISTINE
     Dates: end: 20171130

REACTIONS (10)
  - Necrotising soft tissue infection [None]
  - Clostridium test positive [None]
  - Hypotension [None]
  - Febrile neutropenia [None]
  - Tachycardia [None]
  - Rectal fissure [None]
  - Enterococcus test positive [None]
  - Bacterial test positive [None]
  - Perirectal abscess [None]
  - Pseudomonas test positive [None]

NARRATIVE: CASE EVENT DATE: 20171205
